FAERS Safety Report 16413542 (Version 1)
Quarter: 2019Q2

REPORT INFORMATION
  Report Type: Spontaneous
  Country: FR (occurrence: FR)
  Receive Date: 20190611
  Receipt Date: 20190611
  Transmission Date: 20190711
  Serious: Yes (Hospitalization, Other)
  Sender: FDA-Public Use
  Company Number: FR-GLAXOSMITHKLINE-FR2019101345

PATIENT
  Age: 31 Year
  Sex: Female
  Weight: 79 kg

DRUGS (1)
  1. VOLTARENE (DICLOFENAC SODIUM) [Suspect]
     Active Substance: DICLOFENAC SODIUM
     Indication: TONSILLITIS
     Dosage: NOT KNOWN DOSAGE; IN TOTAL
     Route: 048
     Dates: start: 20190510, end: 20190510

REACTIONS (1)
  - Cellulitis pharyngeal [Not Recovered/Not Resolved]

NARRATIVE: CASE EVENT DATE: 20190513
